FAERS Safety Report 20363667 (Version 1)
Quarter: 2022Q1

REPORT INFORMATION
  Report Type: Spontaneous
  Country: US (occurrence: US)
  Receive Date: 20220121
  Receipt Date: 20220121
  Transmission Date: 20220423
  Serious: Yes (Other)
  Sender: FDA-Public Use
  Company Number: US-NOVOPROD-883115

PATIENT
  Sex: Male

DRUGS (2)
  1. LEVEMIR [Suspect]
     Active Substance: INSULIN DETEMIR
     Indication: Insulin resistant diabetes
     Dosage: 70 UNITS AND MORE LONG ACTING INSULIN PER DAY
     Route: 058
  2. RYBELSUS [Suspect]
     Active Substance: SEMAGLUTIDE
     Indication: Insulin resistant diabetes
     Dosage: 7 MG
     Route: 048

REACTIONS (2)
  - Insulin resistant diabetes [Unknown]
  - Condition aggravated [Unknown]
